FAERS Safety Report 8355121-8 (Version None)
Quarter: 2012Q2

REPORT INFORMATION
  Report Type: 
  Country: None (occurrence: None)
  Receive Date: 20120511
  Receipt Date: 20120503
  Transmission Date: 20120825
  Serious: No
  Sender: FDA-Public Use
  Company Number: US-JNJFOC-20120401193

PATIENT
  Sex: Male
  Weight: 56.8 kg

DRUGS (2)
  1. HUMIRA [Concomitant]
     Indication: INFLAMMATORY BOWEL DISEASE
     Dates: start: 20101213
  2. REMICADE [Suspect]
     Indication: INFLAMMATORY BOWEL DISEASE
     Dosage: DISCONTINUED PRIOR TO STUDY ENROLLEMENT
     Route: 042
     Dates: start: 20100522

REACTIONS (1)
  - DIARRHOEA [None]
